FAERS Safety Report 5131058-2 (Version None)
Quarter: 2006Q3

REPORT INFORMATION
  Report Type: 
  Country: None (occurrence: None)
  Receive Date: 20060829
  Receipt Date: 20060713
  Transmission Date: 20061208
  Serious: No
  Sender: FDA-Public Use
  Company Number: S06-USA-0716-01

PATIENT
  Age: 52 Year
  Sex: Male

DRUGS (5)
  1. CAMPRAL [Suspect]
     Indication: ALCOHOLISM
     Dosage: 666 MG TID PO
     Route: 048
     Dates: start: 20050922, end: 20050924
  2. DEPAKOTE [Concomitant]
  3. EFFEXOR XR (VENLAPAXINE) [Concomitant]
  4. RISPERDAL [Concomitant]
  5. KLONOPIN [Concomitant]

REACTIONS (1)
  - RASH GENERALISED [None]
